FAERS Safety Report 16311115 (Version 6)
Quarter: 2020Q3

REPORT INFORMATION
  Report Type: Report from Study
  Country: GB (occurrence: GB)
  Receive Date: 20190514
  Receipt Date: 20200908
  Transmission Date: 20201102
  Serious: Yes (Disabling, Other)
  Sender: FDA-Public Use
  Company Number: GB-BRISTOL-MYERS SQUIBB COMPANY-BMS-2018-106370

PATIENT
  Age: 65 Year
  Sex: Male

DRUGS (1)
  1. ABATACEPT [Suspect]
     Active Substance: ABATACEPT
     Indication: RHEUMATOID ARTHRITIS
     Dosage: 125 MILLIGRAM, QWK
     Route: 058
     Dates: start: 20181019, end: 202006

REACTIONS (8)
  - Lower respiratory tract infection [Unknown]
  - Urinary tract infection [Recovered/Resolved]
  - Wound [Not Recovered/Not Resolved]
  - Peripheral swelling [Unknown]
  - Device breakage [Unknown]
  - Bone disorder [Unknown]
  - Device related infection [Unknown]
  - Wound secretion [Unknown]

NARRATIVE: CASE EVENT DATE: 20181113
